FAERS Safety Report 11734155 (Version 2)
Quarter: 2015Q4

REPORT INFORMATION
  Report Type: Spontaneous
  Country: IN (occurrence: IN)
  Receive Date: 20151113
  Receipt Date: 20151113
  Transmission Date: 20160304
  Serious: Yes (Other)
  Sender: FDA-Public Use
  Company Number: IN-WATSON-2015-12778

PATIENT
  Age: 74 Year
  Sex: Male

DRUGS (11)
  1. IVABRADINE [Suspect]
     Active Substance: IVABRADINE
     Indication: HYPERTENSION
     Dosage: 5 MG, DAILY
     Route: 065
  2. CLOPIDOGREL [Concomitant]
     Active Substance: CLOPIDOGREL BISULFATE
     Indication: PRODUCT USED FOR UNKNOWN INDICATION
     Dosage: 75 MG, DAILY
     Route: 065
  3. ATORVASTATIN [Concomitant]
     Active Substance: ATORVASTATIN
     Indication: CORONARY ARTERY DISEASE
     Dosage: 20 MG, DAILY
     Route: 065
  4. PIPERACILLIN AND TAZOBACTAM [Concomitant]
     Active Substance: PIPERACILLIN SODIUM\TAZOBACTAM SODIUM
     Indication: PNEUMONIA
     Dosage: UNK
     Route: 065
  5. RANOLAZINE [Interacting]
     Active Substance: RANOLAZINE
     Indication: ANGINA PECTORIS
     Dosage: 500 MG, BID
     Route: 065
  6. ASPIRIN. [Concomitant]
     Active Substance: ASPIRIN
     Indication: PRODUCT USED FOR UNKNOWN INDICATION
     Dosage: 75 MG, DAILY
     Route: 065
  7. DIGOXIN (UNKNOWN) [Suspect]
     Active Substance: DIGOXIN
     Indication: PRODUCT USED FOR UNKNOWN INDICATION
     Dosage: 0.25 MG, DAILY, 5 DAYS/WEEK
     Route: 065
  8. CIPROFLOXACIN HYDROCHLORIDE (UNKNOWN) [Interacting]
     Active Substance: CIPROFLOXACIN HYDROCHLORIDE
     Indication: PNEUMONIA
     Dosage: UNK
     Route: 065
  9. TORSEMIDE. [Suspect]
     Active Substance: TORSEMIDE
     Indication: HYPERTENSION
     Dosage: 5 MG, DAILY
     Route: 065
  10. CARVEDILOL (UNKNOWN) [Suspect]
     Active Substance: CARVEDILOL
     Indication: PRODUCT USED FOR UNKNOWN INDICATION
     Dosage: 3.125 MG, BID
     Route: 065
  11. ISOSORBIDE MONONITRATE (UNKNOWN) [Suspect]
     Active Substance: ISOSORBIDE MONONITRATE
     Indication: ANGINA PECTORIS
     Dosage: 30 MG, DAILY
     Route: 065

REACTIONS (9)
  - Confusional state [Recovered/Resolved]
  - Ataxia [Recovered/Resolved]
  - Toxicity to various agents [Unknown]
  - Cerebellar syndrome [Recovered/Resolved]
  - Orthostatic hypotension [Unknown]
  - Dysarthria [Recovered/Resolved]
  - Bradycardia [Unknown]
  - Drug interaction [Recovered/Resolved]
  - Hallucination [Recovered/Resolved]
